FAERS Safety Report 8272551-3 (Version None)
Quarter: 2012Q2

REPORT INFORMATION
  Report Type: 
  Country: None (occurrence: None)
  Receive Date: 20120410
  Receipt Date: 20120328
  Transmission Date: 20120825
  Serious: Yes (Other)
  Sender: FDA-Public Use
  Company Number: CA-ROCHE-1054828

PATIENT
  Sex: Female
  Weight: 86.26 kg

DRUGS (34)
  1. ONDANSETRON [Concomitant]
     Indication: PREMEDICATION
     Route: 042
     Dates: start: 20110623, end: 20110623
  2. SLEEP-EZE [Concomitant]
  3. DIPHENHYDRAMINE HCL [Concomitant]
     Indication: PREMEDICATION
     Route: 048
     Dates: start: 20110623, end: 20110623
  4. SULFATRIM [Concomitant]
  5. PREVACID [Concomitant]
     Indication: GASTROOESOPHAGEAL REFLUX DISEASE
  6. ADVAIR DISKUS 100/50 [Concomitant]
  7. VALPROIC ACID [Concomitant]
  8. BENADRYL [Concomitant]
  9. SPIRIVA [Concomitant]
  10. OXYCONTIN [Concomitant]
  11. IBUPROFEN [Concomitant]
  12. MABTHERA [Suspect]
     Indication: VASCULITIS
     Route: 042
     Dates: start: 20100827, end: 20110623
  13. ALBUTEROL [Concomitant]
  14. GRAVOL TAB [Concomitant]
  15. LASIX [Concomitant]
  16. PYRIDOSTIGMINE BROMIDE [Concomitant]
  17. XANAX [Concomitant]
  18. TEMAZEPAM [Concomitant]
  19. NEILMED SINUS RINSE [Concomitant]
  20. DIAZEPAM [Concomitant]
  21. HYDROMORPHONE HCL [Concomitant]
  22. MABTHERA [Suspect]
     Dosage: ONCE, MAINTENANCE
     Route: 042
     Dates: start: 20110623
  23. ONDANSETRON [Concomitant]
  24. VENTOLIN [Concomitant]
  25. CELEXA [Concomitant]
  26. SENOKOT [Concomitant]
  27. CALCIUM CITRATE WITH VITAMIN D3 [Concomitant]
  28. RHINARIS [Concomitant]
  29. LORAZEPAM [Concomitant]
  30. BISACODYL [Concomitant]
  31. ACETAMINOPHEN [Concomitant]
     Indication: PREMEDICATION
     Route: 048
     Dates: start: 20110623, end: 20110623
  32. ALENDRONATE SODIUM [Concomitant]
  33. NYSTATIN [Concomitant]
  34. TOBRAMYCIN [Concomitant]

REACTIONS (5)
  - BLOOD PRESSURE INCREASED [None]
  - DYSPNOEA [None]
  - OXYGEN SATURATION DECREASED [None]
  - OEDEMA [None]
  - CREPITATIONS [None]
